FAERS Safety Report 7945603 (Version 3)
Quarter: 2018Q3

REPORT INFORMATION
  Report Type: Spontaneous
  Country: US (occurrence: US)
  Receive Date: 20110516
  Receipt Date: 20180925
  Transmission Date: 20181010
  Serious: Yes (Other)
  Sender: FDA-Public Use
  Company Number: PHEH2008US01286

PATIENT
  Age: 71 Year
  Sex: Male

DRUGS (6)
  1. BABY ASPIRIN [Concomitant]
     Active Substance: ASPIRIN
     Indication: PRODUCT USED FOR UNKNOWN INDICATION
     Dosage: UNK
     Route: 065
  2. DIOVAN HCT [Suspect]
     Active Substance: HYDROCHLOROTHIAZIDE\VALSARTAN
     Indication: HYPERTENSION
     Dosage: 1 DF (160/12.5 MG), QD
     Route: 065
     Dates: start: 2006, end: 2008
  3. DIOVAN HCT [Suspect]
     Active Substance: HYDROCHLOROTHIAZIDE\VALSARTAN
     Dosage: 0.5 DF, (160/12.5 MG)
     Route: 065
  4. POTASSIUM CHLORIDE. [Concomitant]
     Active Substance: POTASSIUM CHLORIDE
     Indication: PRODUCT USED FOR UNKNOWN INDICATION
     Dosage: UNK
     Route: 065
  5. IBUPROFEN. [Concomitant]
     Active Substance: IBUPROFEN
     Indication: PRODUCT USED FOR UNKNOWN INDICATION
     Dosage: 200 MG, UNK
     Route: 065
  6. FUROSEMIDE. [Concomitant]
     Active Substance: FUROSEMIDE
     Indication: PRODUCT USED FOR UNKNOWN INDICATION
     Dosage: UNK
     Route: 065

REACTIONS (14)
  - Cellulitis [Recovered/Resolved]
  - Pain in extremity [Not Recovered/Not Resolved]
  - Gait inability [Not Recovered/Not Resolved]
  - Hypersensitivity [Not Recovered/Not Resolved]
  - Weight decreased [Not Recovered/Not Resolved]
  - Limb discomfort [Unknown]
  - Atrial fibrillation [Unknown]
  - Pain [Unknown]
  - Palpitations [Unknown]
  - Atrophy [Not Recovered/Not Resolved]
  - Wrong technique in product usage process [Unknown]
  - Blood pressure decreased [Unknown]
  - Arthralgia [Not Recovered/Not Resolved]
  - Diffuse idiopathic skeletal hyperostosis [Unknown]

NARRATIVE: CASE EVENT DATE: 200706
